FAERS Safety Report 7547481-2 (Version None)
Quarter: 2011Q2

REPORT INFORMATION
  Report Type: 
  Country: None (occurrence: None)
  Receive Date: 20110614
  Receipt Date: 20110610
  Transmission Date: 20111010
  Serious: Yes (Death)
  Sender: FDA-Public Use
  Company Number: US-ABBOTT-11P-163-0731584-00

PATIENT
  Sex: Male

DRUGS (1)
  1. HUMIRA [Suspect]
     Indication: PSORIASIS
     Dates: start: 20090101, end: 20110609

REACTIONS (9)
  - ALOPECIA [None]
  - SKIN DISORDER [None]
  - DEATH [None]
  - SKIN FRAGILITY [None]
  - CARDIOVASCULAR DISORDER [None]
  - CEREBROVASCULAR ACCIDENT [None]
  - SKIN ATROPHY [None]
  - MOOD ALTERED [None]
  - ABNORMAL BEHAVIOUR [None]
